FAERS Safety Report 8679622 (Version 2)
Quarter: 2013Q4

REPORT INFORMATION
  Report Type: Spontaneous
  Country: US (occurrence: US)
  Receive Date: 20120724
  Receipt Date: 20131031
  Transmission Date: 20140711
  Serious: No
  Sender: FDA-Public Use
  Company Number: US-009507513-2012SP032476

PATIENT
  Age: 42 Year
  Sex: Female

DRUGS (5)
  1. PEGINTRON [Suspect]
     Dosage: 150 MICROGRAM, QW
     Dates: start: 20120518
  2. RIBASPHERE [Suspect]
     Indication: HEPATITIS C
  3. KLONOPIN [Concomitant]
     Indication: PRODUCT USED FOR UNKNOWN INDICATION
  4. ADDERALL TABLETS [Concomitant]
  5. ANTIVIRAL (UNSPECIFIED) [Concomitant]

REACTIONS (3)
  - Decreased appetite [Recovered/Resolved]
  - Vomiting [Recovered/Resolved]
  - Drug dose omission [Unknown]
